FAERS Safety Report 9275063 (Version 3)
Quarter: 2013Q2

REPORT INFORMATION
  Report Type: Spontaneous
  Country: US (occurrence: US)
  Receive Date: 20130507
  Receipt Date: 20130528
  Transmission Date: 20140414
  Serious: Yes (Other)
  Sender: FDA-Public Use
  Company Number: US-BAYER-2013-050085

PATIENT
  Age: 28 Year
  Sex: Female

DRUGS (5)
  1. MIRENA [Suspect]
     Indication: CONTRACEPTION
     Dosage: 20 MCG/24HR, CONT
     Route: 015
     Dates: start: 20130305, end: 20130425
  2. VIBRAMYCIN [DOXYCYCLINE HYCLATE] [Concomitant]
     Dosage: 100 MG, BID
     Route: 048
  3. CYTOTEC [Concomitant]
     Dosage: 200 MCG TABLET, 1 TAB AT NIGHT BEFORE PROCEDURE AND 1 TAB AT MORNING OF PROCEDURE
  4. LEVOTHYROXINE SODIUM [Concomitant]
     Dosage: 0.025 MG, UNK
  5. ESCITALOPRAM OXALATE [Concomitant]
     Dosage: 10 MG, UNK

REACTIONS (14)
  - Vaginal infection [None]
  - Acne [None]
  - Hair growth abnormal [None]
  - Uterine infection [Recovered/Resolved]
  - Alopecia [Recovered/Resolved]
  - Skin disorder [Recovered/Resolved]
  - Weight increased [Recovered/Resolved]
  - Abdominal distension [Recovered/Resolved]
  - Visual impairment [Recovering/Resolving]
  - Headache [Recovered/Resolved]
  - Dizziness [Recovered/Resolved]
  - Rash [Recovered/Resolved]
  - Mood altered [None]
  - Swelling face [None]
